FAERS Safety Report 7159633-4 (Version None)
Quarter: 2010Q4

REPORT INFORMATION
  Report Type: 
  Country: None (occurrence: None)
  Receive Date: 20101214
  Receipt Date: 20101027
  Transmission Date: 20110411
  Serious: No
  Sender: FDA-Public Use
  Company Number: US-ASTRAZENECA-2010SE50958

PATIENT
  Sex: Male
  Weight: 108 kg

DRUGS (7)
  1. CRESTOR [Suspect]
     Indication: PROPHYLAXIS
     Route: 048
  2. METFORMIN HCL [Concomitant]
     Indication: DIABETES MELLITUS
     Dosage: DAILY
  3. ACTOS [Concomitant]
     Indication: DIABETES MELLITUS
     Dosage: DAILY
  4. HUMALOLG [Concomitant]
     Indication: DIABETES MELLITUS
     Dosage: DAILY
  5. RAMIPRIL [Concomitant]
     Indication: BLOOD PRESSURE
     Dosage: DAILY
  6. CARVEDOL [Concomitant]
     Indication: BLOOD PRESSURE
     Dosage: DAILY
  7. EFFIENTS [Concomitant]
     Indication: ANTICOAGULANT THERAPY
     Dosage: DAILY

REACTIONS (2)
  - ARTHRITIS [None]
  - DIABETES MELLITUS [None]
